FAERS Safety Report 7522530-6 (Version None)
Quarter: 2011Q2

REPORT INFORMATION
  Report Type: 
  Country: None (occurrence: None)
  Receive Date: 20110603
  Receipt Date: 20110502
  Transmission Date: 20111010
  Serious: No
  Sender: FDA-Public Use
  Company Number: US-BAYER-2011-038793

PATIENT

DRUGS (3)
  1. ACETAMINOPHEN [Concomitant]
     Indication: HEADACHE
     Dosage: 3 DF, ONCE
  2. ALEVE (CAPLET) [Suspect]
     Indication: HEADACHE
     Dosage: 2 DF, ONCE
     Route: 048
  3. ASPIRIN [Suspect]
     Indication: HEADACHE
     Dosage: 1 DF, ONCE

REACTIONS (1)
  - HEADACHE [None]
